FAERS Safety Report 26130769 (Version 1)
Quarter: 2025Q4

REPORT INFORMATION
  Report Type: Spontaneous
  Country: US (occurrence: US)
  Receive Date: 20251208
  Receipt Date: 20251208
  Transmission Date: 20260118
  Serious: No
  Sender: BIOCRYST PHARMACEUTICALS
  Company Number: US-BIOCRYST PHARMACEUTICALS, INC.-2025BCR01504

PATIENT
  Age: 13 Year
  Sex: Female

DRUGS (1)
  1. ORLADEYO [Suspect]
     Active Substance: BEROTRALSTAT HYDROCHLORIDE

REACTIONS (3)
  - Odynophagia [Unknown]
  - Oxygen saturation decreased [Unknown]
  - Palatal disorder [Unknown]

NARRATIVE: CASE EVENT DATE: 20250301
